FAERS Safety Report 5841677-3 (Version None)
Quarter: 2008Q3

REPORT INFORMATION
  Report Type: 
  Country: None (occurrence: None)
  Receive Date: 20080812
  Receipt Date: 20080808
  Transmission Date: 20090109
  Serious: Yes (Life-Threatening, Hospitalization)
  Sender: FDA-Public Use
  Company Number: IT-AVENTIS-200811300EU

PATIENT
  Age: 25 Year
  Sex: Female

DRUGS (1)
  1. ENOXAPARIN SODIUM [Suspect]
     Route: 058
     Dates: start: 20080311, end: 20080311

REACTIONS (4)
  - ANAPHYLACTOID REACTION [None]
  - ANGIOEDEMA [None]
  - PARAESTHESIA [None]
  - URTICARIA [None]
